FAERS Safety Report 9049990 (Version 1)
Quarter: 2013Q1

REPORT INFORMATION
  Report Type: Spontaneous
  Country: FR (occurrence: FR)
  Receive Date: 20130205
  Receipt Date: 20130205
  Transmission Date: 20140127
  Serious: Yes (Hospitalization, Other)
  Sender: FDA-Public Use
  Company Number: FR-ROXANE LABORATORIES, INC.-2013-RO-00181RO

PATIENT
  Age: 78 Year
  Sex: Male

DRUGS (2)
  1. PREDNISONE [Suspect]
     Indication: POLYMYALGIA RHEUMATICA
  2. PREDNISONE [Suspect]
     Dosage: 30 MG
     Dates: start: 2002, end: 2008

REACTIONS (8)
  - Lyme disease [Recovered/Resolved]
  - Hepatitis [Recovered/Resolved]
  - Meningoradiculitis [Recovered/Resolved]
  - Erythema migrans [Recovered/Resolved]
  - Diplopia [Recovered/Resolved]
  - Extensor plantar response [Recovered/Resolved]
  - Pain in extremity [Recovered/Resolved]
  - Drug dependence [Recovered/Resolved]
